FAERS Safety Report 11456871 (Version 2)
Quarter: 2015Q4

REPORT INFORMATION
  Report Type: Report from Study
  Country: JP (occurrence: JP)
  Receive Date: 20150904
  Receipt Date: 20151015
  Transmission Date: 20160304
  Serious: Yes (Life-Threatening, Hospitalization)
  Sender: FDA-Public Use
  Company Number: JP-ROCHE-1579706

PATIENT
  Age: 40 Year
  Sex: Female

DRUGS (10)
  1. VEMURAFENIB [Suspect]
     Active Substance: VEMURAFENIB
     Indication: MALIGNANT MELANOMA
     Dosage: MOST RECENT DOSE WAS ADMINISTERED ON 27/APR/2015
     Route: 048
     Dates: start: 20150413
  2. LOXOPROFEN [Suspect]
     Active Substance: LOXOPROFEN
     Indication: PROPHYLAXIS
     Dosage: AT THE PAIN
     Route: 048
     Dates: start: 20150216, end: 20150412
  3. RISPERDAL [Concomitant]
     Active Substance: RISPERIDONE
     Indication: SCHIZOPHRENIA
     Route: 048
     Dates: start: 20130605, end: 20150513
  4. METGLUCO [Concomitant]
     Active Substance: METFORMIN HYDROCHLORIDE
     Indication: DIABETES MELLITUS
     Route: 048
     Dates: start: 20140120, end: 20150513
  5. LOXOPROFEN [Suspect]
     Active Substance: LOXOPROFEN
     Indication: PROPHYLAXIS
     Dosage: AT THE PAIN
     Route: 048
     Dates: start: 20150413, end: 20150508
  6. REBAMIPIDE [Concomitant]
     Active Substance: REBAMIPIDE
     Indication: PROPHYLAXIS
     Route: 048
     Dates: start: 20150413, end: 20150508
  7. REBAMIPIDE [Concomitant]
     Active Substance: REBAMIPIDE
     Indication: PROPHYLAXIS
     Dosage: AT THE PAIN
     Route: 048
     Dates: start: 20150216, end: 20150508
  8. VEMURAFENIB [Suspect]
     Active Substance: VEMURAFENIB
     Indication: MALIGNANT MELANOMA
     Route: 048
     Dates: end: 20150805
  9. RISPERDAL [Concomitant]
     Active Substance: RISPERIDONE
     Indication: SCHIZOPHRENIA
     Route: 048
     Dates: start: 20130604, end: 20130604
  10. NU-LOTAN [Concomitant]
     Active Substance: LOSARTAN POTASSIUM
     Indication: HYPERTENSION
     Route: 048
     Dates: start: 20150413, end: 20150501

REACTIONS (4)
  - Sepsis [Recovered/Resolved]
  - Cardiac failure [Recovered/Resolved]
  - Electrocardiogram QT prolonged [Recovered/Resolved]
  - Toxic epidermal necrolysis [Recovering/Resolving]

NARRATIVE: CASE EVENT DATE: 20150427
